FAERS Safety Report 4735030-3 (Version None)
Quarter: 2005Q3

REPORT INFORMATION
  Report Type: 
  Country: None (occurrence: None)
  Receive Date: 20050804
  Receipt Date: 20050726
  Transmission Date: 20060218
  Serious: Yes (Hospitalization)
  Sender: FDA-Public Use
  Company Number: PHBS2005GB10939

PATIENT
  Age: 75 Year
  Sex: Female

DRUGS (4)
  1. DICLOFENAC [Suspect]
     Indication: OSTEOARTHRITIS
  2. ZOPICLONE [Concomitant]
  3. CHONDROITIN W/GLUCOSAMINE [Concomitant]
  4. JAMU CAP DELIMA [Suspect]

REACTIONS (10)
  - AGRANULOCYTOSIS [None]
  - CELLULITIS [None]
  - DYSPHAGIA [None]
  - HAEMOGLOBIN DECREASED [None]
  - LARYNGEAL DISORDER [None]
  - LARYNGEAL OEDEMA [None]
  - PHARYNGITIS [None]
  - PHARYNGOLARYNGEAL PAIN [None]
  - PYREXIA [None]
  - WHITE BLOOD CELL COUNT INCREASED [None]
